FAERS Safety Report 7593798-5 (Version None)
Quarter: 2011Q3

REPORT INFORMATION
  Report Type: 
  Country: None (occurrence: None)
  Receive Date: 20110706
  Receipt Date: 20110624
  Transmission Date: 20111222
  Serious: Yes (Hospitalization, Other)
  Sender: FDA-Public Use
  Company Number: PHHY2011US56819

PATIENT
  Sex: Male

DRUGS (1)
  1. EXELON [Suspect]
     Dosage: UNK
     Route: 062
     Dates: start: 20110610, end: 20110616

REACTIONS (6)
  - DEMENTIA [None]
  - DISORIENTATION [None]
  - MUSCULAR WEAKNESS [None]
  - NIGHTMARE [None]
  - HALLUCINATION [None]
  - CONFUSIONAL STATE [None]
